FAERS Safety Report 7932376-2 (Version None)
Quarter: 2011Q4

REPORT INFORMATION
  Report Type: 
  Country: None (occurrence: None)
  Receive Date: 20111121
  Receipt Date: 20111108
  Transmission Date: 20120403
  Serious: Yes (Hospitalization)
  Sender: FDA-Public Use
  Company Number: JP-MYLANLABS-2011S1023280

PATIENT
  Age: 27 Year
  Sex: Female

DRUGS (5)
  1. CYCLOPHOSPHAMIDE [Suspect]
     Dosage: PULSE THERAPY: 750 MG/MO FOR 3MO (TOTAL DOSE 2250MG)
     Route: 065
     Dates: start: 19970101
  2. METHOTREXATE [Suspect]
     Indication: ARTHRALGIA
     Dosage: 4 MG/WEEK (TOTAL DOSE 768MG)
     Route: 065
     Dates: start: 19970101
  3. CYCLOPHOSPHAMIDE [Suspect]
     Indication: LUPUS NEPHRITIS
     Dosage: PULSE THERAPY (TOTAL DOSE 3400MG); LATER RECEIVED 750 MG/MO
     Route: 065
     Dates: start: 19970101
  4. PREDNISOLONE [Concomitant]
     Indication: SYSTEMIC LUPUS ERYTHEMATOSUS
     Route: 065
     Dates: start: 19910101
  5. METHYLPREDNISOLONE [Concomitant]
     Indication: LUPUS NEPHRITIS
     Dosage: PULSE THERAPY
     Route: 065
     Dates: start: 19970101

REACTIONS (3)
  - REFRACTORY ANAEMIA WITH AN EXCESS OF BLASTS [None]
  - MYELODYSPLASTIC SYNDROME [None]
  - SUBCUTANEOUS HAEMATOMA [None]
